FAERS Safety Report 9585770 (Version 1)
Quarter: 2013Q4

REPORT INFORMATION
  Report Type: Spontaneous
  Country: GB (occurrence: None)
  Receive Date: 20131001
  Receipt Date: 20131001
  Transmission Date: 20140711
  Serious: Yes (Other)
  Sender: FDA-Public Use
  Company Number: GER/UKI/13/0034772

PATIENT
  Age: 72 Year
  Sex: Male

DRUGS (7)
  1. AMLODIPINE (AMLODIPINE) [Suspect]
     Indication: HYPERTENSION
  2. LISINOPRIL (LISINOPRIL) [Suspect]
     Indication: HYPERTENSION
  3. SIMVASTATIN (SIMVASTATIN) [Suspect]
     Indication: PRODUCT USED FOR UNKNOWN INDICATION
  4. ATENOLOL ( ATENOLOL) [Concomitant]
  5. ATORVASTATIN ( ATORVASTATIN) [Concomitant]
  6. DOXAZOSIN ( DOXAZOSIN) [Concomitant]
  7. RANITIDINE ( RANITIDINE) [Concomitant]

REACTIONS (5)
  - Blood glucose increased [None]
  - White blood cell count increased [None]
  - Malaise [None]
  - Arthralgia [None]
  - Myalgia [None]
